FAERS Safety Report 10422143 (Version 1)
Quarter: 2014Q3

REPORT INFORMATION
  Report Type: Spontaneous
  Country: US (occurrence: US)
  Receive Date: 20140901
  Receipt Date: 20140901
  Transmission Date: 20150326
  Serious: No
  Sender: FDA-Public Use
  Company Number: US-SA-BMS15080609

PATIENT
  Age: 72 Year
  Sex: Female

DRUGS (3)
  1. HYDROCHLOROTHIAZIDE. [Suspect]
     Active Substance: HYDROCHLOROTHIAZIDE
     Indication: PRODUCT USED FOR UNKNOWN INDICATION
     Dosage: TUES,THURS,SAT FOR 4 TO 5YRS
     Route: 065
  2. AVAPRO [Suspect]
     Active Substance: IRBESARTAN
     Indication: HYPERTENSION
     Dosage: 4 TO 5YRS
     Route: 065
  3. AVAPRO [Suspect]
     Active Substance: IRBESARTAN
     Indication: HYPERTENSION
     Dosage: 4 TO 5YRS
     Route: 065
     Dates: start: 20140311, end: 20140311

REACTIONS (3)
  - Oropharyngeal discomfort [Unknown]
  - Gastrooesophageal reflux disease [Not Recovered/Not Resolved]
  - Blood potassium decreased [Unknown]

NARRATIVE: CASE EVENT DATE: 20140311
